FAERS Safety Report 14925824 (Version 3)
Quarter: 2018Q3

REPORT INFORMATION
  Report Type: Spontaneous
  Country: IT (occurrence: IT)
  Receive Date: 20180522
  Receipt Date: 20180914
  Transmission Date: 20181010
  Serious: Yes (Other)
  Sender: FDA-Public Use
  Company Number: IT-ALLERGAN-1827076US

PATIENT
  Age: 38 Year
  Sex: Female

DRUGS (1)
  1. TIMOLOL UNK [Suspect]
     Active Substance: TIMOLOL
     Indication: GLAUCOMA
     Dosage: UNK
     Route: 047

REACTIONS (3)
  - Vulvovaginitis trichomonal [Unknown]
  - Stillbirth [Unknown]
  - Pregnancy [Unknown]
